FAERS Safety Report 10191503 (Version 2)
Quarter: 2014Q2

REPORT INFORMATION
  Report Type: Report from Study
  Country: CA (occurrence: CA)
  Receive Date: 20140523
  Receipt Date: 20140607
  Transmission Date: 20141212
  Serious: Yes (Hospitalization)
  Sender: FDA-Public Use
  Company Number: PHHY2014CA062774

PATIENT
  Age: 35 Year
  Sex: Female

DRUGS (6)
  1. CLOZARIL [Suspect]
     Indication: SCHIZOPHRENIA
     Dosage: 575 MG, UNK
     Route: 048
     Dates: start: 200106
  2. NOVO-PERIDOL [Concomitant]
     Dosage: UNK
  3. CLONAZEPAM [Concomitant]
     Dosage: 2 MG,DAILY
  4. ELTROXIN [Concomitant]
     Dosage: 0.1 MG, DAILY
  5. LAMOTRIGIN [Concomitant]
     Dosage: 200 MG,DAILY
  6. PROPRANOLOL [Concomitant]
     Dosage: 20 MG, DAILY

REACTIONS (2)
  - Fall [Recovered/Resolved]
  - Dizziness [Recovered/Resolved]
